FAERS Safety Report 13751973 (Version 2)
Quarter: 2017Q3

REPORT INFORMATION
  Report Type: Spontaneous
  Country: US (occurrence: US)
  Receive Date: 20170713
  Receipt Date: 20170810
  Transmission Date: 20171127
  Serious: No
  Sender: FDA-Public Use
  Company Number: US-TEVA-785957ACC

PATIENT
  Age: 57 Year
  Sex: Female

DRUGS (10)
  1. COPAXONE [Suspect]
     Active Substance: GLATIRAMER ACETATE
     Indication: MULTIPLE SCLEROSIS
     Dosage: 17.1429 MILLIGRAM DAILY;
     Route: 058
     Dates: start: 20150522
  2. QUETIAPINE. [Concomitant]
     Active Substance: QUETIAPINE
  3. DOCUSATE [Concomitant]
     Active Substance: DOCUSATE
  4. LISINOPRIL. [Concomitant]
     Active Substance: LISINOPRIL
  5. CLONAZEPAM. [Concomitant]
     Active Substance: CLONAZEPAM
  6. BACLOFEN. [Concomitant]
     Active Substance: BACLOFEN
  7. CLONIDINE. [Concomitant]
     Active Substance: CLONIDINE
  8. DULOXETINE. [Concomitant]
     Active Substance: DULOXETINE
  9. GABAPENTIN. [Concomitant]
     Active Substance: GABAPENTIN
  10. PRAVASTATIN. [Concomitant]
     Active Substance: PRAVASTATIN

REACTIONS (4)
  - Rash [Recovered/Resolved]
  - Product use issue [Unknown]
  - Urticaria [Recovered/Resolved]
  - Drug hypersensitivity [Recovered/Resolved]

NARRATIVE: CASE EVENT DATE: 20170626
